FAERS Safety Report 24611170 (Version 2)
Quarter: 2025Q4

REPORT INFORMATION
  Report Type: Spontaneous
  Country: US (occurrence: US)
  Receive Date: 20241113
  Receipt Date: 20251018
  Transmission Date: 20260118
  Serious: Yes (Hospitalization)
  Sender: CIPLA
  Company Number: US-MLMSERVICE-20241025-PI240697-00312-1

PATIENT

DRUGS (7)
  1. TESTOSTERONE [Suspect]
     Active Substance: TESTOSTERONE
     Indication: Libido disorder
     Dosage: 200 MILLIGRAM (IMPLANTED TESTOSTERONE PELLETS OF 200 MG)
     Dates: start: 2009
  2. TESTOSTERONE [Suspect]
     Active Substance: TESTOSTERONE
     Indication: Menopausal symptoms
     Dosage: 250 MILLIGRAM, (TITRATED UP TO 250 MG)
     Dates: start: 202103, end: 202106
  3. TESTOSTERONE [Suspect]
     Active Substance: TESTOSTERONE
     Dosage: 200 MILLIGRAM (DOSE DECREASED TO 200 MG DUE TO INCREASED SYMPTOMS)
     Dates: start: 202106
  4. TESTOSTERONE [Suspect]
     Active Substance: TESTOSTERONE
     Dosage: 125 MILLIGRAM (RESUMED TESTOSTERONE AT 125MG)
     Dates: start: 202209, end: 2024
  5. GABAPENTIN [Concomitant]
     Active Substance: GABAPENTIN
     Indication: Supplementation therapy
     Dosage: UNK
     Route: 065
  6. DIETARY SUPPLEMENT [Concomitant]
     Active Substance: DIETARY SUPPLEMENT
     Indication: Supplementation therapy
     Dosage: UNK
     Route: 065
  7. ST. JOHN^S WORT [Concomitant]
     Active Substance: ST. JOHN^S WORT
     Indication: Supplementation therapy
     Dosage: UNK
     Route: 065

REACTIONS (8)
  - Insomnia [Recovered/Resolved]
  - Delusion [Recovered/Resolved]
  - Violence-related symptom [Recovered/Resolved]
  - Agitation [Recovered/Resolved]
  - Anxiety [Recovered/Resolved]
  - Prescribed overdose [Unknown]
  - Incorrect dose administered [Unknown]
  - Blood testosterone increased [Recovered/Resolved]

NARRATIVE: CASE EVENT DATE: 20210101
